FAERS Safety Report 6454615-X (Version None)
Quarter: 2009Q4

REPORT INFORMATION
  Report Type: 
  Country: None (occurrence: None)
  Receive Date: 20091118
  Receipt Date: 20091107
  Transmission Date: 20100525
  Serious: Yes (Other)
  Sender: FDA-Public Use
  Company Number: 2009AP004503

PATIENT
  Age: 38 Year
  Sex: Male

DRUGS (6)
  1. MYCOPHENOLATE MOFETIL [Suspect]
     Indication: IMMUNOSUPPRESSION
  2. PREDNISONSE [Suspect]
     Indication: IMMUNOSUPPRESSION
  3. ANTI THYMOCYTE IMMUNOGLOSULIN [Suspect]
     Indication: IMMUNOSUPPRESSION
  4. TACROLIMUS [Suspect]
     Indication: IMMUNOSUPPRESSION
  5. SIROLIMOS [Suspect]
     Indication: IMMUNOSUPPRESSION
  6. CORTICOSTEROID NOS [Suspect]
     Indication: IMMUNOSUPPRESSION

REACTIONS (1)
  - ACUTE FEBRILE NEUTROPHILIC DERMATOSIS [None]
